FAERS Safety Report 10331230 (Version 1)
Quarter: 2014Q3

REPORT INFORMATION
  Report Type: Spontaneous
  Country: US (occurrence: US)
  Receive Date: 20140722
  Receipt Date: 20140722
  Transmission Date: 20150326
  Serious: No
  Sender: FDA-Public Use
  Company Number: US-BAYER-2014-109318

PATIENT
  Sex: Female

DRUGS (1)
  1. SKYLA [Suspect]
     Active Substance: LEVONORGESTREL
     Indication: CONTRACEPTION
     Dosage: UNK UNK, CONT
     Route: 015
     Dates: start: 20140714, end: 20140714

REACTIONS (2)
  - Post procedural discomfort [None]
  - Device difficult to use [None]

NARRATIVE: CASE EVENT DATE: 20140714
